FAERS Safety Report 15564299 (Version 1)
Quarter: 2018Q4

REPORT INFORMATION
  Report Type: Report from Study
  Country: None (occurrence: GR)
  Receive Date: 20181030
  Receipt Date: 20181030
  Transmission Date: 20190205
  Serious: Yes (Hospitalization)
  Sender: FDA-Public Use
  Company Number: GR-ABBVIE-18S-066-2533408-00

PATIENT
  Sex: Male

DRUGS (2)
  1. DUODOPA [Suspect]
     Active Substance: CARBIDOPA\LEVODOPA
     Indication: PARKINSON^S DISEASE
     Dosage: MD:7.0ML; CR:3.3ML/H; ED:2.0ML
     Route: 050
     Dates: start: 20160329, end: 20181020
  2. DUODOPA [Suspect]
     Active Substance: CARBIDOPA\LEVODOPA
     Dosage: MD:7.0ML; CR:3.1ML/H; ED:2.0ML
     Route: 050
     Dates: start: 20181025

REACTIONS (1)
  - Musculoskeletal stiffness [Not Recovered/Not Resolved]
